FAERS Safety Report 9822172 (Version 1)
Quarter: 2014Q1

REPORT INFORMATION
  Report Type: Spontaneous
  Country: GR (occurrence: GR)
  Receive Date: 20140116
  Receipt Date: 20140116
  Transmission Date: 20141002
  Serious: Yes (Other)
  Sender: FDA-Public Use
  Company Number: PHHY2014GR003329

PATIENT
  Sex: 0

DRUGS (3)
  1. ONBREZ [Suspect]
     Indication: CHRONIC OBSTRUCTIVE PULMONARY DISEASE
     Dosage: UNK
  2. ANTIEPILEPTICS [Concomitant]
     Dosage: UNK
  3. ANTIEPILEPTICS [Concomitant]
     Dosage: UNK, DECREASED DOSE

REACTIONS (1)
  - Epilepsy [Unknown]
